FAERS Safety Report 9113138 (Version 1)
Quarter: 2013Q1

REPORT INFORMATION
  Report Type: Report from Study
  Country: US (occurrence: US)
  Receive Date: 20130211
  Receipt Date: 20130211
  Transmission Date: 20140127
  Serious: No
  Sender: FDA-Public Use
  Company Number: US-VERTEX PHARMACEUTICALS INC.-2013-001776

PATIENT
  Age: 50 Year
  Sex: Female

DRUGS (3)
  1. VX-950 (TELAPREVIR) [Suspect]
     Indication: HEPATITIS C
     Dosage: 750 MG, TID
     Route: 048
     Dates: start: 20130129, end: 20130202
  2. RIBAPAK [Suspect]
     Indication: HEPATITIS C
     Dosage: 400 MG AM, 600 MG PM,  QD
     Route: 048
     Dates: start: 20130129, end: 20130202
  3. PEGASYS [Suspect]
     Indication: HEPATITIS C
     Dosage: 180 ?G, QW
     Route: 058
     Dates: start: 20130129, end: 20130202

REACTIONS (2)
  - Pyrexia [Unknown]
  - Rash generalised [Unknown]
